FAERS Safety Report 12674099 (Version 1)
Quarter: 2016Q3

REPORT INFORMATION
  Report Type: Spontaneous
  Country: CN (occurrence: CN)
  Receive Date: 20160822
  Receipt Date: 20160822
  Transmission Date: 20161109
  Serious: Yes (Death, Other)
  Sender: FDA-Public Use
  Company Number: CN-BRISTOL-MYERS SQUIBB COMPANY-BMS-2016-067980

PATIENT
  Age: 61 Year
  Sex: Male

DRUGS (2)
  1. NIVOLUMAB [Suspect]
     Active Substance: NIVOLUMAB
     Indication: METASTASES TO LYMPH NODES
  2. NIVOLUMAB [Suspect]
     Active Substance: NIVOLUMAB
     Indication: SQUAMOUS CELL CARCINOMA OF LUNG
     Dosage: 3 MG/KG, Q2WK
     Route: 065
     Dates: start: 20150806, end: 20150904

REACTIONS (6)
  - Candida infection [Recovering/Resolving]
  - Death [Fatal]
  - Haemostasis [Unknown]
  - Haemoptysis [Unknown]
  - Thrombocytopenia [Unknown]
  - Acinetobacter infection [Recovering/Resolving]

NARRATIVE: CASE EVENT DATE: 20150911
